FAERS Safety Report 13115413 (Version 1)
Quarter: 2017Q1

REPORT INFORMATION
  Report Type: Spontaneous
  Country: US (occurrence: US)
  Receive Date: 20170113
  Receipt Date: 20170113
  Transmission Date: 20170428
  Serious: Yes (Life-Threatening, Hospitalization, Other)
  Sender: FDA-Public Use
  Company Number: US-SAOL THERAPEUTICS-2017SAO00062

PATIENT
  Age: 61 Year
  Sex: Female

DRUGS (4)
  1. COMPOUNDED BACLOFEN [Suspect]
     Active Substance: BACLOFEN
     Indication: SPINAL PAIN
     Dosage: 0.08518 MG, \DAY
     Route: 037
     Dates: start: 20140314
  2. BUPIVACAINE. [Suspect]
     Active Substance: BUPIVACAINE
     Dosage: 0.5677 MG, \DAY
     Route: 037
     Dates: start: 20140314
  3. FENTANYL. [Suspect]
     Active Substance: FENTANYL
     Indication: SPINAL PAIN
     Dosage: 8.5 MG, \DAY
     Route: 037
     Dates: start: 20140314
  4. LIORESAL [Suspect]
     Active Substance: BACLOFEN
     Indication: SPINAL PAIN
     Dosage: 0.875 MG, \DAY

REACTIONS (18)
  - Seizure [Recovered/Resolved]
  - Malaise [Unknown]
  - Device failure [Unknown]
  - Fall [Recovered/Resolved]
  - Diarrhoea [Unknown]
  - Withdrawal syndrome [Unknown]
  - Blood pressure increased [Unknown]
  - Tooth infection [Unknown]
  - Abdominal pain [Unknown]
  - Heart rate increased [Unknown]
  - Tremor [Unknown]
  - Anxiety [Unknown]
  - Off label use [Unknown]
  - Unresponsive to stimuli [Recovered/Resolved]
  - Apparent death [Recovered/Resolved]
  - Rhinorrhoea [Unknown]
  - Amnesia [Unknown]
  - Insomnia [Unknown]

NARRATIVE: CASE EVENT DATE: 2015
